FAERS Safety Report 5397477-4 (Version None)
Quarter: 2007Q3

REPORT INFORMATION
  Report Type: 
  Country: None (occurrence: None)
  Receive Date: 20070726
  Receipt Date: 20070717
  Transmission Date: 20080115
  Serious: Yes (Hospitalization)
  Sender: FDA-Public Use
  Company Number: HQWYE093217JUL07

PATIENT
  Age: 42 Year
  Sex: Female

DRUGS (2)
  1. IBUPROFEN [Suspect]
     Dosage: UNKNOWN AMOUNT THREE TIMES DAILY
     Route: 065
  2. IBUPROFEN [Suspect]
     Dosage: UNKNOWN AMOUNT
     Route: 065

REACTIONS (1)
  - SMALL INTESTINAL STENOSIS [None]
